FAERS Safety Report 13839056 (Version 1)
Quarter: 2017Q3

REPORT INFORMATION
  Report Type: Spontaneous
  Country: US (occurrence: US)
  Receive Date: 20170805
  Receipt Date: 20170805
  Transmission Date: 20171127
  Serious: Yes (Disabling)
  Sender: FDA-Public Use
  Company Number: None

PATIENT
  Age: 55 Year
  Sex: Male
  Weight: 74.25 kg

DRUGS (4)
  1. IODINE. [Concomitant]
     Active Substance: IODINE
  2. LORATADINE. [Suspect]
     Active Substance: LORATADINE
     Indication: SEASONAL ALLERGY
     Dosage: ?          QUANTITY:1 TABLET(S);?
     Route: 048
     Dates: start: 20170301, end: 20170711
  3. METHYL B-12 SHOT [Concomitant]
  4. COQ10 [Concomitant]
     Active Substance: UBIDECARENONE

REACTIONS (6)
  - Faeces soft [None]
  - Frequent bowel movements [None]
  - Abdominal rigidity [None]
  - Abnormal faeces [None]
  - Dyspepsia [None]
  - Gastrooesophageal reflux disease [None]

NARRATIVE: CASE EVENT DATE: 20170710
